FAERS Safety Report 4916081-2 (Version None)
Quarter: 2006Q1

REPORT INFORMATION
  Report Type: 
  Country: None (occurrence: None)
  Receive Date: 20060214
  Receipt Date: 20060203
  Transmission Date: 20060701
  Serious: Yes (Hospitalization, Other)
  Sender: FDA-Public Use
  Company Number: 2004068432

PATIENT
  Age: 85 Year
  Sex: Female
  Weight: 84.8226 kg

DRUGS (10)
  1. TIKOSYN [Suspect]
     Indication: ATRIAL FIBRILLATION
     Dosage: 1000 MCG (500 MCG, 2 IN 1 D), ORAL
     Route: 048
     Dates: start: 20030101
  2. HYDROCHLOROTHIAZIDE [Suspect]
     Indication: ILL-DEFINED DISORDER
     Dosage: ORAL
     Route: 048
     Dates: start: 20040717
  3. DRUG, UNSPECIFIED (DRUG, UNSPECIFIED) [Suspect]
     Indication: ILL-DEFINED DISORDER
  4. VALSARTAN [Suspect]
     Indication: ILL-DEFINED DISORDER
  5. TIAZAC [Suspect]
     Indication: ILL-DEFINED DISORDER
  6. DYAZIDE [Suspect]
     Indication: ILL-DEFINED DISORDER
  7. ASPIRIN [Concomitant]
  8. CALCIUM (CALCIUM) [Concomitant]
  9. GLUCOSAMINE (GLUCOSAMINE) [Concomitant]
  10. PSYLLIUM (PSYLLIUM) [Concomitant]

REACTIONS (20)
  - ABDOMINAL PAIN [None]
  - ANXIETY [None]
  - ARTHRALGIA [None]
  - ASTHENIA [None]
  - CARDIAC ARREST [None]
  - CARDIAC PACEMAKER MALFUNCTION [None]
  - DEPRESSION [None]
  - DIZZINESS [None]
  - FATIGUE [None]
  - GLOSSODYNIA [None]
  - HYPERTENSIVE CRISIS [None]
  - INSOMNIA [None]
  - MALAISE [None]
  - NAUSEA [None]
  - NERVOUSNESS [None]
  - PHOTOSENSITIVITY REACTION [None]
  - SCAR [None]
  - SINUSITIS [None]
  - SWOLLEN TONGUE [None]
  - WRONG TECHNIQUE IN DRUG USAGE PROCESS [None]
